FAERS Safety Report 12651290 (Version 1)
Quarter: 2016Q3

REPORT INFORMATION
  Report Type: Spontaneous
  Country: US (occurrence: US)
  Receive Date: 20160815
  Receipt Date: 20160815
  Transmission Date: 20161109
  Serious: No
  Sender: FDA-Public Use
  Company Number: US-BIOGEN-2016BI00276115

PATIENT
  Age: 31 Year
  Sex: Female

DRUGS (3)
  1. PLEGRIDY [Suspect]
     Active Substance: PEGINTERFERON BETA-1A
     Indication: MULTIPLE SCLEROSIS
     Route: 065
     Dates: start: 20141118, end: 20150320
  2. PLEGRIDY [Suspect]
     Active Substance: PEGINTERFERON BETA-1A
     Route: 065
     Dates: start: 20160713
  3. PLEGRIDY [Suspect]
     Active Substance: PEGINTERFERON BETA-1A
     Route: 065
     Dates: start: 20150918, end: 20151030

REACTIONS (1)
  - Fall [Recovered/Resolved]

NARRATIVE: CASE EVENT DATE: 20160808
